FAERS Safety Report 4868104-7 (Version None)
Quarter: 2005Q4

REPORT INFORMATION
  Report Type: 
  Country: None (occurrence: None)
  Receive Date: 20051229
  Receipt Date: 20051218
  Transmission Date: 20060501
  Serious: Yes (Other)
  Sender: FDA-Public Use
  Company Number: VN-JNJFOC-20051204096

PATIENT
  Age: 7 Year
  Sex: Male
  Weight: 30 kg

DRUGS (1)
  1. MEBENDAZOLE [Suspect]
     Route: 065
     Dates: start: 20051217

REACTIONS (2)
  - PYREXIA [None]
  - URTICARIA [None]
